FAERS Safety Report 5871635-4 (Version None)
Quarter: 2008Q3

REPORT INFORMATION
  Report Type: 
  Country: None (occurrence: None)
  Receive Date: 20080904
  Receipt Date: 20080904
  Transmission Date: 20090109
  Serious: Yes (Other)
  Sender: FDA-Public Use
  Company Number: None

PATIENT
  Sex: Female
  Weight: 52.1637 kg

DRUGS (1)
  1. ACTONEL [Suspect]
     Indication: RESORPTION BONE INCREASED
     Dosage: MONTHLY
     Dates: start: 20080801

REACTIONS (8)
  - BACK PAIN [None]
  - DYSPEPSIA [None]
  - LOCAL SWELLING [None]
  - LOCALISED INFECTION [None]
  - MALAISE [None]
  - RASH [None]
  - SWELLING FACE [None]
  - TOOTH DISORDER [None]
